FAERS Safety Report 11130161 (Version 3)
Quarter: 2016Q2

REPORT INFORMATION
  Report Type: Report from Study
  Country: JP (occurrence: JP)
  Receive Date: 20150521
  Receipt Date: 20160421
  Transmission Date: 20160815
  Serious: Yes (Hospitalization)
  Sender: FDA-Public Use
  Company Number: JP-B.I. PHARMACEUTICALS,INC./RIDGEFIELD-2015-BI-27125NB

PATIENT
  Age: 57 Year
  Sex: Male
  Weight: 69 kg

DRUGS (4)
  1. RYTHMODAN [Concomitant]
     Active Substance: DISOPYRAMIDE
     Indication: ARRHYTHMIA
     Dosage: 300 MG
     Route: 048
  2. ELIQUIS [Concomitant]
     Active Substance: APIXABAN
     Indication: ARRHYTHMIA
     Dosage: 10 MG
     Route: 048
  3. GILOTRIF [Suspect]
     Active Substance: AFATINIB
     Indication: LUNG ADENOCARCINOMA
     Dosage: 40 MG
     Route: 065
     Dates: start: 20150316, end: 20150421
  4. MAINTATE [Concomitant]
     Active Substance: BISOPROLOL FUMARATE
     Indication: ARRHYTHMIA
     Dosage: 2.5 MG
     Route: 048

REACTIONS (3)
  - Duodenal ulcer haemorrhage [Recovered/Resolved]
  - Paronychia [Not Recovered/Not Resolved]
  - Diarrhoea [Not Recovered/Not Resolved]

NARRATIVE: CASE EVENT DATE: 20150318
